FAERS Safety Report 17791345 (Version 1)
Quarter: 2020Q2

REPORT INFORMATION
  Report Type: Spontaneous
  Country: US (occurrence: US)
  Receive Date: 20200514
  Receipt Date: 20200514
  Transmission Date: 20200714
  Serious: Yes (Hospitalization)
  Sender: FDA-Public Use
  Company Number: None

PATIENT
  Age: 72 Year
  Sex: Female
  Weight: 62 kg

DRUGS (1)
  1. WARFARIN WARFARIN NA (EXELAN) 7.5MG TAB) [Suspect]
     Active Substance: WARFARIN SODIUM
     Route: 048
     Dates: start: 20191002, end: 20200507

REACTIONS (3)
  - Gastric haemorrhage [None]
  - Anticoagulation drug level above therapeutic [None]
  - Blood loss anaemia [None]

NARRATIVE: CASE EVENT DATE: 20200506
